FAERS Safety Report 18418201 (Version 2)
Quarter: 2021Q2

REPORT INFORMATION
  Report Type: Spontaneous
  Country: US (occurrence: US)
  Receive Date: 20201023
  Receipt Date: 20210421
  Transmission Date: 20210717
  Serious: No
  Sender: FDA-Public Use
  Company Number: US-SA-2020SA297525

PATIENT
  Age: 26 Year
  Sex: Male

DRUGS (1)
  1. DUPIXENT [Suspect]
     Active Substance: DUPILUMAB
     Dosage: 300 MG,OTHER
     Route: 058
     Dates: start: 20200307

REACTIONS (3)
  - Product dose omission in error [Unknown]
  - Product use issue [Unknown]
  - Eye inflammation [Unknown]

NARRATIVE: CASE EVENT DATE: 20200929
